FAERS Safety Report 9244418 (Version 1)
Quarter: 2013Q2

REPORT INFORMATION
  Report Type: Report from Study
  Country: CA (occurrence: CA)
  Receive Date: 20130422
  Receipt Date: 20130422
  Transmission Date: 20140414
  Serious: Yes (Other)
  Sender: FDA-Public Use
  Company Number: CA-JNJFOC-20130408819

PATIENT
  Sex: Female
  Weight: 92.6 kg

DRUGS (1)
  1. REMICADE [Suspect]
     Indication: PSORIATIC ARTHROPATHY
     Route: 042
     Dates: start: 20120716, end: 20130412

REACTIONS (2)
  - Cardiac failure [Unknown]
  - Drug ineffective [Unknown]
